FAERS Safety Report 7527159-1 (Version None)
Quarter: 2011Q2

REPORT INFORMATION
  Report Type: 
  Country: None (occurrence: None)
  Receive Date: 20110607
  Receipt Date: 20110531
  Transmission Date: 20111010
  Serious: Yes (Hospitalization)
  Sender: FDA-Public Use
  Company Number: US-BIOGENIDEC-2010BI032777

PATIENT
  Age: 62 Year
  Sex: Female
  Weight: 54 kg

DRUGS (1)
  1. AVONEX [Suspect]
     Indication: MULTIPLE SCLEROSIS
     Route: 030
     Dates: start: 20100105

REACTIONS (6)
  - JOINT SWELLING [None]
  - LACERATION [None]
  - ABASIA [None]
  - CARDIAC FAILURE CONGESTIVE [None]
  - HIP FRACTURE [None]
  - FALL [None]
